FAERS Safety Report 7478552-7 (Version None)
Quarter: 2011Q2

REPORT INFORMATION
  Report Type: 
  Country: None (occurrence: None)
  Receive Date: 20110513
  Receipt Date: 20110510
  Transmission Date: 20111010
  Serious: Yes (Hospitalization, Other)
  Sender: FDA-Public Use
  Company Number: US-PFIZER INC-2011100212

PATIENT
  Age: 56 Year
  Sex: Male

DRUGS (2)
  1. CHANTIX [Suspect]
  2. LATUDA [Suspect]
     Indication: SCHIZOPHRENIA
     Dosage: 40 MG, 1X/DAY
     Route: 048
     Dates: start: 20110401, end: 20110401

REACTIONS (2)
  - CONVULSION [None]
  - SCHIZOPHRENIA [None]
